FAERS Safety Report 6810677-9 (Version None)
Quarter: 2010Q2

REPORT INFORMATION
  Report Type: 
  Country: None (occurrence: None)
  Receive Date: 20100630
  Receipt Date: 20070717
  Transmission Date: 20101027
  Serious: No
  Sender: FDA-Public Use
  Company Number: US-PFIZER INC-2007058993

PATIENT
  Sex: Female

DRUGS (3)
  1. ESTRING [Suspect]
     Indication: HORMONE REPLACEMENT THERAPY
     Route: 067
     Dates: start: 20070409
  2. OMEPRAZOLE [Concomitant]
  3. SUCRALFATE [Concomitant]

REACTIONS (1)
  - VULVOVAGINAL MYCOTIC INFECTION [None]
